FAERS Safety Report 10762186 (Version 1)
Quarter: 2015Q1

REPORT INFORMATION
  Report Type: Spontaneous
  Country: US (occurrence: None)
  Receive Date: 20150129
  Receipt Date: 20150129
  Transmission Date: 20150721
  Serious: Yes (Other)
  Sender: FDA-Public Use
  Company Number: 097594

PATIENT
  Sex: Female
  Weight: 53.5 kg

DRUGS (1)
  1. KEPPRA [Suspect]
     Active Substance: LEVETIRACETAM
     Indication: SEIZURE
     Dosage: 500 MG, 3 IN AM AND 3 IN PM
     Route: 048

REACTIONS (2)
  - Seizure [None]
  - Generalised tonic-clonic seizure [None]
